FAERS Safety Report 4993611-6 (Version None)
Quarter: 2006Q2

REPORT INFORMATION
  Report Type: 
  Country: None (occurrence: None)
  Receive Date: 20060505
  Receipt Date: 20060426
  Transmission Date: 20061013
  Serious: Yes (Hospitalization, Other)
  Sender: FDA-Public Use
  Company Number: US-JNJFOC-20051002624

PATIENT
  Sex: Female
  Weight: 69.4 kg

DRUGS (3)
  1. ORTHO EVRA [Suspect]
     Indication: DRUG USE FOR UNKNOWN INDICATION
     Route: 062
  2. NEXIUM [Concomitant]
  3. CELEBREX [Concomitant]

REACTIONS (9)
  - CEREBRAL ARTERY STENOSIS [None]
  - CEREBRAL INFARCTION [None]
  - CONVULSION [None]
  - EAR DISCOMFORT [None]
  - ENCEPHALOMALACIA [None]
  - ENCEPHALOPATHY [None]
  - NECK PAIN [None]
  - SYNCOPE [None]
  - TREATMENT NONCOMPLIANCE [None]
